FAERS Safety Report 5941624-X (Version None)
Quarter: 2008Q4

REPORT INFORMATION
  Report Type: 
  Country: None (occurrence: None)
  Receive Date: 20081104
  Receipt Date: 20081104
  Transmission Date: 20090506
  Serious: Yes (Disabling)
  Sender: FDA-Public Use
  Company Number: None

PATIENT
  Age: 84 Year
  Sex: Male

DRUGS (1)
  1. AZITHROMYCIN [Suspect]
     Indication: INFECTION
     Dosage: 500 MG Q24H IV
     Route: 042
     Dates: start: 20080904, end: 20080909

REACTIONS (1)
  - INTERNATIONAL NORMALISED RATIO INCREASED [None]
